FAERS Safety Report 6595946-2 (Version None)
Quarter: 2010Q1

REPORT INFORMATION
  Report Type: 
  Country: None (occurrence: None)
  Receive Date: 20100223
  Receipt Date: 20100209
  Transmission Date: 20100710
  Serious: Yes (Hospitalization, Other)
  Sender: FDA-Public Use
  Company Number: PHEH2010US02394

PATIENT
  Sex: Male
  Weight: 83.9 kg

DRUGS (12)
  1. EXJADE [Suspect]
     Indication: MYELODYSPLASTIC SYNDROME
     Dosage: 500 MG, QD
     Route: 048
  2. EXJADE [Suspect]
     Indication: SERUM FERRITIN INCREASED
  3. ALLOPURINOL [Concomitant]
     Dosage: 100 MG, DAILY
     Route: 048
  4. ASPIRIN [Concomitant]
     Dosage: 324 MG, DAILY
     Route: 048
  5. CARVEDILOL [Concomitant]
     Dosage: 6.25 MG, BID
     Route: 048
  6. LISINOPRIL [Concomitant]
     Dosage: 2.5 MG, DAILY
     Route: 048
  7. SIMVASTATIN [Concomitant]
     Dosage: 10 MG, DAILY
     Route: 048
  8. TAMSULOSIN [Concomitant]
     Dosage: 0.4 MG, DAILY
     Route: 048
  9. FUROSEMIDE [Concomitant]
     Dosage: 60 MG, BID
     Route: 048
  10. SIMETHICONE [Concomitant]
     Dosage: 20 MG, TID PC AND HS
     Route: 048
  11. FOLIC ACID [Concomitant]
     Dosage: 1 MG, QD
  12. RED BLOOD CELLS [Concomitant]
     Dosage: 1-2 UNITS WEEKLY

REACTIONS (28)
  - ABDOMINAL DISCOMFORT [None]
  - ALANINE AMINOTRANSFERASE INCREASED [None]
  - ANAEMIA [None]
  - AORTIC STENOSIS [None]
  - ARTERIOSCLEROSIS [None]
  - ATRIAL FIBRILLATION [None]
  - BENIGN PROSTATIC HYPERPLASIA [None]
  - BLOOD CREATININE INCREASED [None]
  - BLOOD UREA INCREASED [None]
  - CARDIAC FAILURE CONGESTIVE [None]
  - CARDIAC MURMUR [None]
  - CARDIOTOXICITY [None]
  - CONJUNCTIVITIS [None]
  - DRUG INEFFECTIVE [None]
  - DYSPNOEA EXERTIONAL [None]
  - GLOMERULAR FILTRATION RATE DECREASED [None]
  - HAEMATOCRIT DECREASED [None]
  - HAEMOGLOBIN DECREASED [None]
  - HEART RATE IRREGULAR [None]
  - ISCHAEMIA [None]
  - OEDEMA PERIPHERAL [None]
  - PALLOR [None]
  - PLATELET COUNT DECREASED [None]
  - RENAL IMPAIRMENT [None]
  - SCIATICA [None]
  - SLEEP APNOEA SYNDROME [None]
  - URINARY INCONTINENCE [None]
  - WEIGHT INCREASED [None]
